FAERS Safety Report 4758634-0 (Version None)
Quarter: 2005Q3

REPORT INFORMATION
  Report Type: 
  Country: None (occurrence: None)
  Receive Date: 20050826
  Receipt Date: 20050812
  Transmission Date: 20060218
  Serious: Yes (Hospitalization)
  Sender: FDA-Public Use
  Company Number: 2005115946

PATIENT
  Sex: Female

DRUGS (2)
  1. TRIFLUCAN (FLUCONAZOLE) [Suspect]
     Indication: CANDIDIASIS
     Dosage: SEE IMAGE
     Dates: start: 20050801, end: 20050801
  2. RIFAMPICIN [Concomitant]

REACTIONS (1)
  - PANCYTOPENIA [None]
